FAERS Safety Report 15636107 (Version 2)
Quarter: 2018Q4

REPORT INFORMATION
  Report Type: Spontaneous
  Country: US (occurrence: US)
  Receive Date: 20181120
  Receipt Date: 20181210
  Transmission Date: 20190205
  Serious: No
  Sender: FDA-Public Use
  Company Number: US-JNJFOC-20181105840

PATIENT
  Age: 77 Year
  Sex: Female

DRUGS (3)
  1. VIVISCAL [Concomitant]
     Indication: ALOPECIA
     Route: 065
  2. WOMENS ROGAINE UNSCENTED [Suspect]
     Active Substance: MINOXIDIL
     Route: 061
  3. WOMENS ROGAINE UNSCENTED [Suspect]
     Active Substance: MINOXIDIL
     Indication: ALOPECIA
     Dosage: A LITTLE BIT
     Route: 061

REACTIONS (4)
  - Product use in unapproved indication [Unknown]
  - Hair disorder [Unknown]
  - Hair growth abnormal [Not Recovered/Not Resolved]
  - Product quality issue [Unknown]
